FAERS Safety Report 13316845 (Version 2)
Quarter: 2017Q1

REPORT INFORMATION
  Report Type: Spontaneous
  Country: IT (occurrence: IT)
  Receive Date: 20170310
  Receipt Date: 20170322
  Transmission Date: 20170428
  Serious: Yes (Death)
  Sender: FDA-Public Use
  Company Number: IT-ROCHE-1902450

PATIENT
  Age: 57 Year
  Sex: Female

DRUGS (3)
  1. DOCETAXEL SANDOZ [Concomitant]
     Active Substance: DOCETAXEL
     Route: 065
  2. PERJETA [Suspect]
     Active Substance: PERTUZUMAB
     Indication: BREAST CANCER STAGE IV
     Dosage: 420 MG 30 MG/ML 1 VIAL (GLASS)
     Route: 042
  3. HERCEPTIN [Concomitant]
     Active Substance: TRASTUZUMAB
     Route: 065

REACTIONS (3)
  - Respiratory failure [Fatal]
  - Febrile neutropenia [Fatal]
  - Septic shock [Fatal]

NARRATIVE: CASE EVENT DATE: 20170210
